FAERS Safety Report 6198588-6 (Version None)
Quarter: 2009Q2

REPORT INFORMATION
  Report Type: 
  Country: None (occurrence: None)
  Receive Date: 20090518
  Receipt Date: 20090512
  Transmission Date: 20091009
  Serious: Yes (Life-Threatening, Other)
  Sender: FDA-Public Use
  Company Number: CERZ-1000629

PATIENT
  Age: 57 Year
  Sex: Male
  Weight: 116 kg

DRUGS (5)
  1. CEREZYME [Suspect]
     Indication: GAUCHER'S DISEASE
     Dosage: 5600 U, Q3W, INTRAVENOUS
     Route: 042
     Dates: start: 20040407
  2. CELLCEPT [Concomitant]
  3. BACTRIM [Concomitant]
  4. PENICILLIN (BENZYLPENICILLIN) [Concomitant]
  5. PROGRAF [Concomitant]

REACTIONS (6)
  - ESCHERICHIA BACTERAEMIA [None]
  - GASTROINTESTINAL HAEMORRHAGE [None]
  - HEPATIC CIRRHOSIS [None]
  - HEPATIC FAILURE [None]
  - LIVER TRANSPLANT [None]
  - LIVER TRANSPLANT REJECTION [None]
